FAERS Safety Report 7121210-9 (Version None)
Quarter: 2010Q4

REPORT INFORMATION
  Report Type: 
  Country: None (occurrence: None)
  Receive Date: 20101124
  Receipt Date: 20101115
  Transmission Date: 20110411
  Serious: Yes (Hospitalization, Other)
  Sender: FDA-Public Use
  Company Number: PHHO2010US17331

PATIENT
  Sex: Female
  Weight: 106.3 kg

DRUGS (2)
  1. FTY 720 FTY+CAP+MSC [Suspect]
     Dosage: DOSE BLINDED
     Route: 048
  2. FTY 720 FTY+CAP+MSC [Suspect]
     Dosage: 0.5MG
     Route: 048
     Dates: start: 20090825, end: 20101110

REACTIONS (4)
  - ANAEMIA [None]
  - ENDOMETRIAL CANCER [None]
  - GAIT DISTURBANCE [None]
  - MULTIPLE SCLEROSIS RELAPSE [None]
